FAERS Safety Report 14263635 (Version 1)
Quarter: 2017Q4

REPORT INFORMATION
  Report Type: Spontaneous
  Country: US (occurrence: US)
  Receive Date: 20171208
  Receipt Date: 20171208
  Transmission Date: 20180321
  Serious: Yes (Hospitalization)
  Sender: FDA-Public Use
  Company Number: US-BEH-2017085667

PATIENT
  Age: 63 Year
  Sex: Female
  Weight: 70.3 kg

DRUGS (19)
  1. OMEGA 3                            /01333901/ [Concomitant]
     Active Substance: FISH OIL\TOCOPHEROL
  2. EPINEPHRINE. [Concomitant]
     Active Substance: EPINEPHRINE
  3. LMX                                /00033401/ [Concomitant]
  4. MAGNESIUM [Concomitant]
     Active Substance: MAGNESIUM
  5. HIZENTRA [Suspect]
     Active Substance: HUMAN IMMUNOGLOBULIN G
     Indication: IMMUNODEFICIENCY COMMON VARIABLE
     Dosage: 10 G, UNK
     Route: 058
     Dates: start: 20120123
  6. ALVESCO [Concomitant]
     Active Substance: CICLESONIDE
  7. MULTIVITAMIN                       /00097801/ [Concomitant]
     Active Substance: VITAMINS
  8. BETAMETHASONE. [Concomitant]
     Active Substance: BETAMETHASONE
  9. TOBI [Concomitant]
     Active Substance: TOBRAMYCIN
  10. VITAMIN D3 [Concomitant]
     Active Substance: CHOLECALCIFEROL
  11. HIZENTRA [Suspect]
     Active Substance: HUMAN IMMUNOGLOBULIN G
     Dosage: UNK
     Route: 058
  12. DIPHENHYDRAMINE. [Concomitant]
     Active Substance: DIPHENHYDRAMINE
  13. RANITIDINE. [Concomitant]
     Active Substance: RANITIDINE
  14. ZYRTEC [Concomitant]
     Active Substance: CETIRIZINE HYDROCHLORIDE
  15. PULMOZYME [Concomitant]
     Active Substance: DORNASE ALFA
  16. PROBIOTIC                          /06395501/ [Concomitant]
     Active Substance: BIFIDOBACTERIUM ANIMALIS LACTIS
  17. SINGULAIR [Concomitant]
     Active Substance: MONTELUKAST SODIUM
  18. PROVENTIL [Concomitant]
     Active Substance: ALBUTEROL
  19. ADVAIR HFA [Concomitant]
     Active Substance: FLUTICASONE PROPIONATE\SALMETEROL XINAFOATE

REACTIONS (1)
  - Pneumonia [Recovered/Resolved]

NARRATIVE: CASE EVENT DATE: 20171109
